FAERS Safety Report 7025333-4 (Version None)
Quarter: 2010Q4

REPORT INFORMATION
  Report Type: 
  Country: None (occurrence: None)
  Receive Date: 20101001
  Receipt Date: 20100923
  Transmission Date: 20110411
  Serious: Yes (Hospitalization)
  Sender: FDA-Public Use
  Company Number: US-AMGEN-QUU440876

PATIENT
  Sex: Female

DRUGS (4)
  1. NPLATE [Suspect]
     Indication: IDIOPATHIC THROMBOCYTOPENIC PURPURA
     Dates: start: 20100505
  2. CORTICOSTEROIDS [Concomitant]
     Dates: start: 20100218
  3. RITUXIMAB [Concomitant]
     Dates: start: 20100222
  4. CYCLOPHOSPHAMIDE [Concomitant]
     Dates: start: 20100218

REACTIONS (1)
  - LYMPHOMA [None]
